FAERS Safety Report 9219461 (Version 2)
Quarter: 2013Q2

REPORT INFORMATION
  Report Type: Spontaneous
  Country: US (occurrence: None)
  Receive Date: 20130405
  Receipt Date: 20130516
  Transmission Date: 20140414
  Serious: Yes (Disabling, Other)
  Sender: FDA-Public Use
  Company Number: ACO_35103_2013

PATIENT
  Age: 41 Year
  Sex: Female

DRUGS (8)
  1. AMPYRA (DALFAMPRIDINE) TABLET, 10MG [Suspect]
     Indication: GAIT DISTURBANCE
     Dates: end: 20130321
  2. CITALOPRAM [Concomitant]
  3. TRAMADOL (TRAMADOL HYDROCHLORIDE) [Concomitant]
  4. SPIRONOLACTONE (SPIRONOLACTONE) [Concomitant]
  5. FLOMAX (TAMSULOSIN HYDROCHLORIDE) [Concomitant]
  6. BACLOFEN (BACLOFEN) [Concomitant]
  7. GABAPENTIN (GABAPENTIN) [Concomitant]
  8. REBIF (INTERFERON BETA-1A) [Concomitant]

REACTIONS (3)
  - Abasia [None]
  - Dysstasia [None]
  - Muscular weakness [None]
